FAERS Safety Report 9067696 (Version 1)
Quarter: 2013Q1

REPORT INFORMATION
  Report Type: Spontaneous
  Country: NO (occurrence: NO)
  Receive Date: 20130128
  Receipt Date: 20130128
  Transmission Date: 20140127
  Serious: Yes (Life-Threatening, Hospitalization, Other)
  Sender: FDA-Public Use
  Company Number: NO-BRISTOL-MYERS SQUIBB COMPANY-17313149

PATIENT
  Age: 53 Year
  Sex: Male

DRUGS (5)
  1. ABILIFY [Suspect]
     Indication: PSYCHOTIC DISORDER
     Route: 048
     Dates: start: 20121004
  2. ATARAX [Concomitant]
     Route: 048
  3. INDERAL RETARD [Concomitant]
     Route: 048
  4. SOMAC [Concomitant]
     Route: 048
  5. RIVOTRIL [Concomitant]
     Route: 048

REACTIONS (1)
  - Hyponatraemia [Recovered/Resolved]
